FAERS Safety Report 4704155-0 (Version None)
Quarter: 2005Q2

REPORT INFORMATION
  Report Type: 
  Country: None (occurrence: None)
  Receive Date: 20050630
  Receipt Date: 20050517
  Transmission Date: 20051028
  Serious: Yes (Other)
  Sender: FDA-Public Use
  Company Number: PHBS2005BE07053

PATIENT
  Age: 71 Year
  Sex: Female
  Weight: 67 kg

DRUGS (4)
  1. ZOMETA [Suspect]
     Indication: METASTASES TO BONE
     Dosage: 4 MG, QMO
     Route: 042
     Dates: start: 20021007, end: 20050325
  2. DURAGESIC-100 [Concomitant]
     Dosage: 25 UG/D
     Route: 065
     Dates: start: 20030301, end: 20040429
  3. DURAGESIC-100 [Concomitant]
     Dosage: 75 UG/D
     Route: 065
     Dates: start: 20040430
  4. CAELYX [Concomitant]
     Route: 065
     Dates: start: 20050317, end: 20050512

REACTIONS (4)
  - ASEPTIC NECROSIS BONE [None]
  - BONE PAIN [None]
  - IMPAIRED HEALING [None]
  - TOOTH EXTRACTION [None]
